FAERS Safety Report 23146169 (Version 1)
Quarter: 2023Q4

REPORT INFORMATION
  Report Type: Spontaneous
  Country: GB (occurrence: GB)
  Receive Date: 20231104
  Receipt Date: 20231104
  Transmission Date: 20240110
  Serious: Yes (Other)
  Sender: FDA-Public Use
  Company Number: GB-EPICPHARMA-GB-2023EPCLIT01638

PATIENT
  Age: 8 Decade
  Sex: Female

DRUGS (1)
  1. AMIODARONE HYDROCHLORIDE [Suspect]
     Active Substance: AMIODARONE HYDROCHLORIDE
     Indication: Atrial fibrillation
     Route: 065

REACTIONS (3)
  - Generalised resistance to thyroid hormone [Unknown]
  - Symptom masked [Unknown]
  - Thyroid disorder [Recovered/Resolved]
